FAERS Safety Report 12222863 (Version 2)
Quarter: 2018Q1

REPORT INFORMATION
  Report Type: Spontaneous
  Country: ES (occurrence: ES)
  Receive Date: 20160330
  Receipt Date: 20180103
  Transmission Date: 20180508
  Serious: Yes (Other)
  Sender: FDA-Public Use
  Company Number: ES-009507513-1603ESP012878

PATIENT
  Age: 7 Year
  Sex: Male
  Weight: 35 kg

DRUGS (1)
  1. SINGULAIR [Suspect]
     Active Substance: MONTELUKAST SODIUM
     Indication: ASTHMA
     Dosage: SINGULAIR 5 MG CHEWABLE TABLETS, 28 TABLETS
     Route: 048
     Dates: start: 20151001, end: 20151101

REACTIONS (2)
  - Suicidal ideation [Recovered/Resolved]
  - Sleep terror [Recovered/Resolved]

NARRATIVE: CASE EVENT DATE: 20151015
